FAERS Safety Report 6252812-X (Version None)
Quarter: 2009Q3

REPORT INFORMATION
  Report Type: 
  Country: None (occurrence: None)
  Receive Date: 20090701
  Receipt Date: 20090303
  Transmission Date: 20100115
  Serious: Yes (Hospitalization)
  Sender: FDA-Public Use
  Company Number: AT-AVENTIS-200912144GDDC

PATIENT
  Age: 65 Year
  Sex: Female
  Weight: 76 kg

DRUGS (6)
  1. DOCETAXEL [Suspect]
     Route: 042
     Dates: start: 20080702
  2. MEXALEN [Concomitant]
     Dates: start: 20080711
  3. NEXIUM [Concomitant]
     Dates: start: 20080711
  4. NEULASTA [Concomitant]
     Dates: start: 20080814
  5. IBANDRONIC ACID [Concomitant]
  6. CAL D VITA [Concomitant]

REACTIONS (1)
  - ANAL FISTULA [None]
